FAERS Safety Report 6767171-3 (Version None)
Quarter: 2010Q2

REPORT INFORMATION
  Report Type: 
  Country: None (occurrence: None)
  Receive Date: 20100614
  Receipt Date: 20100609
  Transmission Date: 20101027
  Serious: Yes (Hospitalization)
  Sender: FDA-Public Use
  Company Number: US-ELI_LILLY_AND_COMPANY-US201006002840

PATIENT
  Sex: Female

DRUGS (1)
  1. HUMALOG [Suspect]
     Indication: TYPE 2 DIABETES MELLITUS
     Dosage: UNK, AS NEEDED

REACTIONS (5)
  - AUTOIMMUNE DISORDER [None]
  - BLOOD GLUCOSE INCREASED [None]
  - BLOOD PRESSURE ABNORMAL [None]
  - GLYCOSYLATED HAEMOGLOBIN INCREASED [None]
  - INCORRECT DOSE ADMINISTERED [None]
